FAERS Safety Report 5078614-8 (Version None)
Quarter: 2006Q3

REPORT INFORMATION
  Report Type: 
  Country: None (occurrence: None)
  Receive Date: 20060810
  Receipt Date: 20060810
  Transmission Date: 20061208
  Serious: Yes (Life-Threatening, Hospitalization)
  Sender: FDA-Public Use
  Company Number: None

PATIENT
  Age: 61 Year
  Sex: Male
  Weight: 123.3784 kg

DRUGS (1)
  1. GENTAMICIN [Suspect]
     Indication: SEPSIS
     Dosage: IV 2 X A DAY
     Route: 042
     Dates: start: 20051205, end: 20060103

REACTIONS (12)
  - DRUG TOXICITY [None]
  - GAIT DISTURBANCE [None]
  - GENERAL PHYSICAL HEALTH DETERIORATION [None]
  - IMPAIRED DRIVING ABILITY [None]
  - LOSS OF CONSCIOUSNESS [None]
  - NAUSEA [None]
  - NYSTAGMUS [None]
  - ORAL INTAKE REDUCED [None]
  - OSCILLOPSIA [None]
  - OTOTOXICITY [None]
  - RENAL FAILURE [None]
  - VESTIBULAR DISORDER [None]
